FAERS Safety Report 8971740 (Version 1)
Quarter: 2012Q4

REPORT INFORMATION
  Report Type: 
  Country: US (occurrence: US)
  Receive Date: 20121217
  Receipt Date: 20121217
  Transmission Date: 20130627
  Serious: No
  Sender: FDA-Public Use
  Company Number: US-BAYER-2012-131905

PATIENT
  Age: 76 Year
  Sex: Female
  Weight: 82 kg

DRUGS (3)
  1. ALEVE CAPLET/TABLET,MIDOL EXTENDED RELIEF CAPLET [Suspect]
     Dosage: 3 DF, PRN
     Route: 048
     Dates: start: 2012
  2. ECOTRIN [Concomitant]
  3. GENERIC ALTENOLOL [Concomitant]

REACTIONS (1)
  - Incorrect drug administration duration [None]
